FAERS Safety Report 4902642-3 (Version None)
Quarter: 2006Q1

REPORT INFORMATION
  Report Type: 
  Country: None (occurrence: None)
  Receive Date: 20060207
  Receipt Date: 20050816
  Transmission Date: 20060701
  Serious: Yes (Other)
  Sender: FDA-Public Use
  Company Number: PHNU2005DE02915

PATIENT
  Sex: Female

DRUGS (11)
  1. ZOMETA [Suspect]
     Indication: MULTIPLE MYELOMA
  2. VINCRISTINE + ADRIAMYCIN + DEXAMETHASONE [Concomitant]
     Indication: MULTIPLE MYELOMA
     Route: 065
     Dates: start: 20030601, end: 20030901
  3. CYCLOPHOSPHAMIDE [Concomitant]
     Indication: MULTIPLE MYELOMA
     Route: 065
     Dates: start: 20050501
  4. ETOPOSIDE [Concomitant]
     Indication: MULTIPLE MYELOMA
     Route: 065
     Dates: start: 20050501
  5. MELPHALAN [Concomitant]
     Dosage: 100 MG/M2, BID
     Route: 065
     Dates: start: 20031101
  6. MELPHALAN [Concomitant]
     Dosage: 100 MG/M2, BID
     Route: 065
     Dates: start: 20050401, end: 20050701
  7. DEXAMETHASONE [Concomitant]
     Indication: MULTIPLE MYELOMA
     Route: 065
     Dates: start: 20050501
  8. RADIOTHERAPY [Concomitant]
     Dosage: 35 GY
     Route: 061
     Dates: start: 20030701
  9. RADIOTHERAPY [Concomitant]
     Dosage: 44 GY
     Route: 061
     Dates: start: 20041001, end: 20041101
  10. PREDNISOLONE [Concomitant]
     Route: 065
     Dates: start: 20050101
  11. PEGINTERFERON ALFA-2B [Concomitant]
     Route: 065
     Dates: start: 20051001

REACTIONS (2)
  - OSTEONECROSIS [None]
  - TOOTH EXTRACTION [None]
